FAERS Safety Report 15098578 (Version 1)
Quarter: 2018Q3

REPORT INFORMATION
  Report Type: Spontaneous
  Country: MX (occurrence: MX)
  Receive Date: 20180702
  Receipt Date: 20180702
  Transmission Date: 20181010
  Serious: Yes (Other)
  Sender: FDA-Public Use
  Company Number: MX-009507513-1807MEX000284

PATIENT

DRUGS (1)
  1. KEYTRUDA [Suspect]
     Active Substance: PEMBROLIZUMAB
     Indication: TRANSITIONAL CELL CARCINOMA
     Dosage: SOLUTION FOR INJECTION 100MG/4ML,10 ML VIAL INJECTION; DOSAGE UNSPECIFIED

REACTIONS (3)
  - Adverse event [Unknown]
  - Disorientation [Unknown]
  - Encephalitis [Unknown]
